FAERS Safety Report 7752007-4 (Version None)
Quarter: 2011Q3

REPORT INFORMATION
  Report Type: 
  Country: None (occurrence: None)
  Receive Date: 20110913
  Receipt Date: 20110909
  Transmission Date: 20111222
  Serious: Yes (Death, Life-Threatening, Hospitalization, Other)
  Sender: FDA-Public Use
  Company Number: 2011SP004402

PATIENT
  Age: 70 Year
  Sex: Female
  Weight: 40.1 kg

DRUGS (15)
  1. COTRIM [Concomitant]
  2. PREDNISOLONE [Concomitant]
  3. FERROUS CITRATE [Concomitant]
  4. DIAZEPAM [Concomitant]
  5. MIYA BM [Concomitant]
  6. PURSENNID (SENNOSIDE) [Concomitant]
  7. TEMODAL [Suspect]
     Indication: GLIOBLASTOMA MULTIFORME
     Dosage: 100 MG; QD; PO
     Route: 048
     Dates: start: 20101129, end: 20110111
  8. NAVOBAN [Concomitant]
  9. FAMOTIDINE [Concomitant]
  10. MAGNESIUM SULFATE [Concomitant]
  11. RADIOTHERAPY [Concomitant]
  12. TEGRETOL [Concomitant]
  13. PRIMPERAN TAB [Concomitant]
  14. PAXIL [Concomitant]
  15. PURSENNID (SENNOSIDE) [Concomitant]

REACTIONS (6)
  - RASH [None]
  - RENAL FAILURE [None]
  - DISSEMINATED INTRAVASCULAR COAGULATION [None]
  - MULTI-ORGAN FAILURE [None]
  - PANCYTOPENIA [None]
  - PNEUMONIA [None]
